FAERS Safety Report 12891075 (Version 2)
Quarter: 2016Q4

REPORT INFORMATION
  Report Type: Spontaneous
  Country: US (occurrence: US)
  Receive Date: 20161027
  Receipt Date: 20161114
  Transmission Date: 20170207
  Serious: No
  Sender: FDA-Public Use
  Company Number: US-SHIRE-US201615871

PATIENT
  Age: 58 Year
  Sex: Female
  Weight: 45.81 kg

DRUGS (3)
  1. XIIDRA [Suspect]
     Active Substance: LIFITEGRAST
     Indication: DRY EYE
     Dosage: 1 GTT, 2X/DAY:BID (IN BOTH EYES)
     Route: 047
     Dates: start: 20160922
  2. XIIDRA [Suspect]
     Active Substance: LIFITEGRAST
     Indication: MEIBOMIAN GLAND DYSFUNCTION
  3. RESTASIS [Concomitant]
     Active Substance: CYCLOSPORINE
     Indication: MEIBOMIAN GLAND DYSFUNCTION
     Dosage: 1 GTT, 2X/DAY:BID
     Route: 047

REACTIONS (4)
  - Dysgeusia [Not Recovered/Not Resolved]
  - Instillation site pain [Recovering/Resolving]
  - Incorrect product storage [Not Recovered/Not Resolved]
  - Breath odour [Not Recovered/Not Resolved]

NARRATIVE: CASE EVENT DATE: 20161022
